FAERS Safety Report 9222695 (Version 1)
Quarter: 2013Q1

REPORT INFORMATION
  Report Type: Spontaneous
  Country: US (occurrence: None)
  Receive Date: 20120914
  Receipt Date: 20120914
  Transmission Date: 20140127
  Serious: Yes (Hospitalization)
  Sender: FDA-Public Use
  Company Number: JPI-P-016937

PATIENT
  Age: 41 Year
  Sex: Female
  Weight: 63.5 kg

DRUGS (3)
  1. XYREM (500 MILLIGRAM/MILLILITERS, SOLUTION) (SODIUM OXYBATE) [Suspect]
     Indication: HYPERSOMNIA
     Route: 048
     Dates: start: 20110429, end: 20110828
  2. WELLBUTRIN (BUPROPION) [Concomitant]
  3. SYNTHROID (LEVOTHYROXINE) [Concomitant]

REACTIONS (6)
  - Staphylococcal infection [None]
  - Herpes zoster [None]
  - Lichen planus [None]
  - Abnormal sleep-related event [None]
  - Sleep talking [None]
  - Somnolence [None]
